FAERS Safety Report 21469017 (Version 1)
Quarter: 2022Q4

REPORT INFORMATION
  Report Type: Report from Study
  Country: US (occurrence: US)
  Receive Date: 20221018
  Receipt Date: 20221018
  Transmission Date: 20230113
  Serious: Yes (Other)
  Sender: FDA-Public Use
  Company Number: US-TAKEDA-2022TUS073657

PATIENT
  Sex: Male

DRUGS (1)
  1. LANADELUMAB [Suspect]
     Active Substance: LANADELUMAB
     Indication: Product used for unknown indication
     Dosage: 1 DOSAGE FORM, Q2WEEKS
     Route: 050

REACTIONS (2)
  - Prostatic operation [Recovered/Resolved]
  - Hereditary angioedema [Recovered/Resolved]
